FAERS Safety Report 24275819 (Version 1)
Quarter: 2024Q3

REPORT INFORMATION
  Report Type: Spontaneous
  Country: US (occurrence: US)
  Receive Date: 20240903
  Receipt Date: 20240903
  Transmission Date: 20241016
  Serious: Yes (Hospitalization, Other)
  Sender: EPIC PHARM
  Company Number: US-EPICPHARMA-US-2024EPCLIT01045

PATIENT
  Age: 76 Year
  Sex: Female

DRUGS (4)
  1. TRIAMCINOLONE ACETONIDE [Suspect]
     Active Substance: TRIAMCINOLONE ACETONIDE
     Indication: Back pain
     Dosage: 6 MONTHS APART, STARTING 18 MONTHS  BEFORE ADMISSION
     Route: 008
  2. GENVOYA [Suspect]
     Active Substance: COBICISTAT\ELVITEGRAVIR\EMTRICITABINE\TENOFOVIR ALAFENAMIDE FUMARATE
     Indication: Antiretroviral therapy
     Route: 065
  3. DESCOVY [Concomitant]
     Active Substance: EMTRICITABINE\TENOFOVIR ALAFENAMIDE FUMARATE
     Indication: Antiretroviral therapy
     Route: 065
  4. DOLUTEGRAVIR [Concomitant]
     Active Substance: DOLUTEGRAVIR
     Indication: Antiretroviral therapy
     Route: 065

REACTIONS (6)
  - Cushing^s syndrome [Recovered/Resolved]
  - Hypothalamic pituitary adrenal axis suppression [Recovered/Resolved]
  - Adrenocortical insufficiency acute [Recovered/Resolved]
  - Drug level increased [Recovered/Resolved]
  - Drug interaction [Unknown]
  - Product use in unapproved indication [Unknown]
